FAERS Safety Report 21418664 (Version 1)
Quarter: 2022Q4

REPORT INFORMATION
  Report Type: Report from Study
  Country: US (occurrence: US)
  Receive Date: 20221006
  Receipt Date: 20221006
  Transmission Date: 20230113
  Serious: No
  Sender: FDA-Public Use
  Company Number: US-ABBVIE-4139534

PATIENT
  Sex: Female

DRUGS (1)
  1. RINVOQ [Suspect]
     Active Substance: UPADACITINIB
     Indication: Rheumatoid arthritis
     Route: 048
     Dates: start: 20220823, end: 2022

REACTIONS (3)
  - Herpes zoster [Unknown]
  - Abdominal pain upper [Unknown]
  - Pain [Unknown]

NARRATIVE: CASE EVENT DATE: 20220101
